FAERS Safety Report 18540249 (Version 1)
Quarter: 2020Q4

REPORT INFORMATION
  Report Type: Spontaneous
  Country: US (occurrence: US)
  Receive Date: 20201124
  Receipt Date: 20201124
  Transmission Date: 20210114
  Serious: Yes (Other)
  Sender: FDA-Public Use
  Company Number: None

PATIENT
  Age: 52 Year
  Sex: Female
  Weight: 109 kg

DRUGS (9)
  1. SYMBICORT [Concomitant]
     Active Substance: BUDESONIDE\FORMOTEROL FUMARATE DIHYDRATE
     Dates: start: 20200930
  2. TRIAMCINOLONE CREAM [Concomitant]
     Active Substance: TRIAMCINOLONE
     Dates: start: 20200428
  3. FLUTICASONE. [Concomitant]
     Active Substance: FLUTICASONE
     Dates: start: 20181213
  4. OMEPRAZOLE. [Concomitant]
     Active Substance: OMEPRAZOLE
     Dates: start: 20200901
  5. DUPILUMAB [Suspect]
     Active Substance: DUPILUMAB
     Indication: ASTHMA
     Dosage: ?
     Route: 058
     Dates: start: 20200417, end: 20200417
  6. CLOBETASOL CREAM [Concomitant]
     Active Substance: CLOBETASOL
     Dates: start: 20200901
  7. MONTELUKAST [Concomitant]
     Active Substance: MONTELUKAST SODIUM
     Dates: start: 20181213
  8. AZELASTINE. [Concomitant]
     Active Substance: AZELASTINE HYDROCHLORIDE
     Dates: start: 20181213
  9. IPRATROPIUM-ALBUTEROL [Concomitant]
     Active Substance: ALBUTEROL\IPRATROPIUM
     Dates: start: 20190107

REACTIONS (13)
  - Productive cough [None]
  - Dyspnoea [None]
  - Injection site pruritus [None]
  - Injection site warmth [None]
  - Headache [None]
  - Eye pain [None]
  - Myalgia [None]
  - Periorbital swelling [None]
  - Drug ineffective [None]
  - Feeling hot [None]
  - Injection site erythema [None]
  - Arthralgia [None]
  - Chest discomfort [None]

NARRATIVE: CASE EVENT DATE: 20200417
